FAERS Safety Report 9612917 (Version 1)
Quarter: 2013Q4

REPORT INFORMATION
  Report Type: Spontaneous
  Country: JP (occurrence: JP)
  Receive Date: 20131010
  Receipt Date: 20131010
  Transmission Date: 20140711
  Serious: Yes (Other)
  Sender: FDA-Public Use
  Company Number: JP-ELI_LILLY_AND_COMPANY-JP201310001004

PATIENT
  Sex: Female

DRUGS (2)
  1. FORTEO [Suspect]
     Indication: OSTEOPOROSIS
     Dosage: UNK
     Route: 058
     Dates: start: 201109, end: 201309
  2. DENOSUMAB [Suspect]
     Indication: OSTEOPOROSIS
     Dosage: UNK
     Dates: start: 201309

REACTIONS (2)
  - Femur fracture [Unknown]
  - Fall [Recovered/Resolved]
